FAERS Safety Report 10052549 (Version 1)
Quarter: 2014Q1

REPORT INFORMATION
  Report Type: Spontaneous
  Country: US (occurrence: None)
  Receive Date: 20140331
  Receipt Date: 20140331
  Transmission Date: 20141002
  Serious: Yes (Life-Threatening, Hospitalization)
  Sender: FDA-Public Use
  Company Number: IPC201403-000142

PATIENT
  Age: 85 Year
  Sex: Female

DRUGS (5)
  1. WARFARIN (WARFARIN) (WARFARIN) [Suspect]
  2. TRIMETHOPRIM-SULFAMETHOXAZOLE [Suspect]
     Indication: URINARY TRACT INFECTION
  3. SOTALOL [Suspect]
  4. VALSARTAN [Suspect]
  5. SPIRONOLACTONE [Suspect]

REACTIONS (10)
  - Diarrhoea [None]
  - Hyperkalaemia [None]
  - Diarrhoea [None]
  - Blood pressure decreased [None]
  - Heart rate decreased [None]
  - Bundle branch block [None]
  - Metabolic acidosis [None]
  - Blood urea increased [None]
  - Electrocardiogram QRS complex prolonged [None]
  - Electrocardiogram T wave amplitude increased [None]
